FAERS Safety Report 7949708-1 (Version None)
Quarter: 2011Q4

REPORT INFORMATION
  Report Type: 
  Country: None (occurrence: None)
  Receive Date: 20111130
  Receipt Date: 20111123
  Transmission Date: 20120403
  Serious: Yes (Hospitalization)
  Sender: FDA-Public Use
  Company Number: IT-ABBOTT-11P-083-0877210-00

PATIENT
  Sex: Male

DRUGS (3)
  1. ROCEPHIN [Concomitant]
     Indication: PRODUCT USED FOR UNKNOWN INDICATION
     Dosage: 2 GM DAILY
     Route: 030
     Dates: start: 20111112, end: 20111113
  2. CLARITHROMYCIN [Suspect]
     Indication: PNEUMONITIS
     Dosage: 1 GM DAILY
     Route: 048
     Dates: start: 20111110, end: 20111113
  3. COUMADIN [Suspect]
     Indication: HEART VALVE REPLACEMENT
     Dosage: 5 MG DAILY
     Route: 048
     Dates: start: 20111101, end: 20111113

REACTIONS (3)
  - BRADYARRHYTHMIA [None]
  - INTERNATIONAL NORMALISED RATIO [None]
  - HYPOTENSION [None]
